FAERS Safety Report 6829656-0 (Version None)
Quarter: 2010Q3

REPORT INFORMATION
  Report Type: 
  Country: None (occurrence: None)
  Receive Date: 20100709
  Receipt Date: 20080611
  Transmission Date: 20110219
  Serious: No
  Sender: FDA-Public Use
  Company Number: US-PFIZER INC-2007009381

PATIENT
  Sex: Female

DRUGS (3)
  1. CHANTIX [Suspect]
  2. GENERAL NUTRIENTS [Suspect]
  3. NICOTINE [Concomitant]

REACTIONS (2)
  - DIARRHOEA [None]
  - GASTROINTESTINAL SOUNDS ABNORMAL [None]
